FAERS Safety Report 15386621 (Version 2)
Quarter: 2018Q3

REPORT INFORMATION
  Report Type: Spontaneous
  Country: JP (occurrence: JP)
  Receive Date: 20180914
  Receipt Date: 20180927
  Transmission Date: 20181010
  Serious: Yes (Other)
  Sender: FDA-Public Use
  Company Number: JP-ALLERGAN-1844853US

PATIENT
  Age: 34 Year
  Sex: Male

DRUGS (6)
  1. TIZANIDINE. [Concomitant]
     Active Substance: TIZANIDINE
     Indication: MUSCLE SPASMS
     Dosage: 3 MG, QD
     Route: 065
     Dates: start: 20170117
  2. DEPAKENE [Concomitant]
     Active Substance: VALPROIC ACID
     Indication: EPILEPSY
     Dosage: 1200 MG, QD
     Route: 065
     Dates: start: 200912
  3. CERCINE [Concomitant]
     Active Substance: DIAZEPAM
     Indication: EPILEPSY
     Dosage: 18 MG, QD
     Route: 065
     Dates: start: 200912
  4. BOTOX [Suspect]
     Active Substance: ONABOTULINUMTOXINA
     Indication: MUSCLE SPASTICITY
     Dosage: LEFT ARM; THE LEFT PECTORALIS MAJOR MUSCLES, 5 UNITS TWICE; THE LEFT BICEPS BRACHII MUSCLE, 20 UNITS
     Route: 030
     Dates: start: 20180510, end: 20180510
  5. ALEVIATIN [Concomitant]
     Active Substance: PHENYTOIN SODIUM
     Indication: EPILEPSY
     Dosage: 200 MG, QD
     Route: 065
     Dates: start: 200912
  6. RIVOTRIL [Concomitant]
     Active Substance: CLONAZEPAM
     Indication: EPILEPSY
     Dosage: 0.5 MG, QD
     Route: 065
     Dates: start: 200912

REACTIONS (4)
  - Injection site bruising [Recovering/Resolving]
  - Muscle rupture [Recovered/Resolved]
  - Injection site swelling [Recovering/Resolving]
  - Injection site erythema [Recovering/Resolving]

NARRATIVE: CASE EVENT DATE: 20180522
